FAERS Safety Report 8981540 (Version 1)
Quarter: 2012Q4

REPORT INFORMATION
  Report Type: 
  Country: GB (occurrence: GB)
  Receive Date: 20121223
  Receipt Date: 20121223
  Transmission Date: 20130627
  Serious: Yes (Life-Threatening)
  Sender: FDA-Public Use
  Company Number: GB-JNJFOC-20121209321

PATIENT
  Age: 82 Year
  Sex: Female
  Weight: 70 kg

DRUGS (11)
  1. RIVAROXABAN [Suspect]
     Indication: PRODUCT USED FOR UNKNOWN INDICATION
     Route: 048
     Dates: start: 20121105, end: 20121126
  2. DOMPERIDONE [Concomitant]
     Route: 065
  3. SIMVASTATIN [Concomitant]
     Route: 065
  4. TRAMADOL [Concomitant]
     Route: 065
  5. ATENOLOL [Concomitant]
     Route: 065
  6. ASACOL [Concomitant]
     Route: 065
  7. AMITRIPTYLINE [Concomitant]
     Route: 065
  8. LANSOPRAZOLE [Concomitant]
     Route: 065
  9. NICORANDIL [Concomitant]
     Route: 065
  10. ISOSORBIDE MONONITRATE [Concomitant]
     Route: 065
  11. FUROSEMIDE [Concomitant]
     Route: 065

REACTIONS (3)
  - Hypotension [Unknown]
  - Melaena [Recovering/Resolving]
  - Haemoglobin decreased [Unknown]
